FAERS Safety Report 12443611 (Version 1)
Quarter: 2016Q2

REPORT INFORMATION
  Report Type: Spontaneous
  Country: US (occurrence: US)
  Receive Date: 20160607
  Receipt Date: 20160607
  Transmission Date: 20160815
  Serious: Yes (Other)
  Sender: FDA-Public Use
  Company Number: US-B.I. PHARMACEUTICALS,INC./RIDGEFIELD-2016-BI-35894BP

PATIENT
  Age: 73 Year
  Sex: Male

DRUGS (2)
  1. ZANTAC [Suspect]
     Active Substance: RANITIDINE HYDROCHLORIDE
     Dosage: 2 ANZ
     Route: 048
     Dates: start: 2011
  2. ZANTAC [Suspect]
     Active Substance: RANITIDINE HYDROCHLORIDE
     Indication: DYSPEPSIA
     Route: 048
     Dates: start: 2011

REACTIONS (7)
  - Pneumonia [Unknown]
  - Hypertension [Unknown]
  - Incorrect dose administered [Unknown]
  - Large intestine perforation [Unknown]
  - Incorrect drug administration duration [Unknown]
  - Cerebrovascular accident [Recovered/Resolved with Sequelae]
  - Atrial fibrillation [Unknown]

NARRATIVE: CASE EVENT DATE: 2011
